FAERS Safety Report 6316267-9 (Version None)
Quarter: 2009Q3

REPORT INFORMATION
  Report Type: 
  Country: None (occurrence: None)
  Receive Date: 20090820
  Receipt Date: 20090810
  Transmission Date: 20100115
  Serious: Yes (Hospitalization)
  Sender: FDA-Public Use
  Company Number: DE-NOVOPROD-289780

PATIENT
  Sex: Female
  Weight: 143 kg

DRUGS (6)
  1. NOVORAPID [Suspect]
     Dosage: 100 IE, QD
     Route: 058
     Dates: start: 20040101, end: 20060701
  2. LEVEMIR [Suspect]
     Dosage: 40 IE, QD
     Route: 058
     Dates: start: 20040101, end: 20061001
  3. ACTRAPID [Suspect]
     Indication: TYPE 2 DIABETES MELLITUS
  4. BISOPROLOL [Concomitant]
     Indication: TACHYCARDIA
     Dosage: 5 MG, QD
     Route: 048
     Dates: start: 20010101
  5. LEVOCETIRIZINE DIHYDROCHLORIDE [Concomitant]
     Dosage: 10 MG, QD
     Route: 048
     Dates: start: 20020101
  6. GABAPENTIN [Concomitant]
     Dosage: 600 MG, QD
     Route: 048
     Dates: start: 20030101

REACTIONS (1)
  - ABSCESS [None]
